FAERS Safety Report 9614653 (Version 1)
Quarter: 2013Q4

REPORT INFORMATION
  Report Type: Spontaneous
  Country: US (occurrence: US)
  Receive Date: 20131011
  Receipt Date: 20131011
  Transmission Date: 20140711
  Serious: Yes (Hospitalization)
  Sender: FDA-Public Use
  Company Number: US-JNJFOC-20131001753

PATIENT
  Age: 60 Year
  Sex: Male

DRUGS (2)
  1. XARELTO [Suspect]
     Indication: DEEP VEIN THROMBOSIS
     Route: 048
     Dates: start: 20130524, end: 20130529
  2. NEULASTA [Concomitant]
     Indication: WHITE BLOOD CELL COUNT DECREASED
     Route: 065

REACTIONS (2)
  - Angioedema [Recovered/Resolved]
  - Vascular operation [Recovered/Resolved]
